FAERS Safety Report 10669195 (Version 1)
Quarter: 2014Q4

REPORT INFORMATION
  Report Type: Report from Study
  Country: CN (occurrence: CN)
  Receive Date: 20141222
  Receipt Date: 20141222
  Transmission Date: 20150529
  Serious: Yes (Other)
  Sender: FDA-Public Use
  Company Number: CN-MYLANLABS-2014M1015203

PATIENT

DRUGS (4)
  1. EPIRUBICIN [Suspect]
     Active Substance: EPIRUBICIN
     Indication: PRECURSOR T-LYMPHOBLASTIC LYMPHOMA/LEUKAEMIA
     Route: 065
  2. DEXAMETHASONE. [Suspect]
     Active Substance: DEXAMETHASONE
     Indication: PRECURSOR T-LYMPHOBLASTIC LYMPHOMA/LEUKAEMIA
     Route: 065
  3. CYCLOPHOSPHAMIDE. [Suspect]
     Active Substance: CYCLOPHOSPHAMIDE
     Indication: PRECURSOR T-LYMPHOBLASTIC LYMPHOMA/LEUKAEMIA
     Route: 065
  4. VINDESINE [Suspect]
     Active Substance: VINDESINE
     Indication: PRECURSOR T-LYMPHOBLASTIC LYMPHOMA/LEUKAEMIA
     Route: 065

REACTIONS (1)
  - Drug-induced liver injury [Recovered/Resolved]
